FAERS Safety Report 10550783 (Version 1)
Quarter: 2014Q4

REPORT INFORMATION
  Report Type: Spontaneous
  Country: US (occurrence: None)
  Receive Date: 20141028
  Receipt Date: 20141028
  Transmission Date: 20150529
  Serious: Yes (Other)
  Sender: FDA-Public Use
  Company Number: None

PATIENT
  Age: 68 Year
  Sex: Male
  Weight: 89.81 kg

DRUGS (1)
  1. FINASTRIDE [Suspect]
     Active Substance: FINASTERIDE
     Indication: PROSTATOMEGALY
     Dosage: ONE TAB EACH DAY
     Route: 048
     Dates: start: 20131101, end: 20140717

REACTIONS (3)
  - Gynaecomastia [None]
  - Breast pain [None]
  - Tenderness [None]

NARRATIVE: CASE EVENT DATE: 20140923
